FAERS Safety Report 5846743-4 (Version None)
Quarter: 2008Q3

REPORT INFORMATION
  Report Type: 
  Country: None (occurrence: None)
  Receive Date: 20080815
  Receipt Date: 20080804
  Transmission Date: 20090109
  Serious: Yes (Hospitalization, Other)
  Sender: FDA-Public Use
  Company Number: FI-JNJFOC-20080801102

PATIENT
  Age: 61 Year
  Sex: Female

DRUGS (6)
  1. REMICADE [Suspect]
     Indication: RHEUMATOID ARTHRITIS
     Route: 042
  2. METHOTREXATE [Suspect]
     Indication: RHEUMATOID ARTHRITIS
  3. CORTISONE [Suspect]
     Indication: RHEUMATOID ARTHRITIS
  4. MELOXICAM [Concomitant]
     Indication: PAIN
  5. FUROSEMIDE [Concomitant]
     Indication: BLOOD PRESSURE
  6. LOSARTAN [Concomitant]
     Indication: BLOOD PRESSURE

REACTIONS (5)
  - DISSEMINATED TUBERCULOSIS [None]
  - HYPERCALCAEMIA [None]
  - NAUSEA [None]
  - PERITONEAL TUBERCULOSIS [None]
  - UTERINE LEIOMYOMA [None]
